FAERS Safety Report 6273047-0 (Version None)
Quarter: 2009Q3

REPORT INFORMATION
  Report Type: 
  Country: None (occurrence: None)
  Receive Date: 20090720
  Receipt Date: 20090714
  Transmission Date: 20100115
  Serious: Yes (Hospitalization, Other)
  Sender: FDA-Public Use
  Company Number: GB-RANBAXY-2009RR-25477

PATIENT
  Sex: Female

DRUGS (5)
  1. CIPROFLOXACIN [Suspect]
     Indication: ENDOCARDITIS BACTERIAL
     Dosage: 1000 MG, UNK
  2. FLUCONAZOLE [Suspect]
     Indication: ENDOCARDITIS BACTERIAL
     Dosage: 400 MG, UNK
     Route: 065
  3. DAPTOMYCIN [Suspect]
     Indication: ENDOCARDITIS BACTERIAL
     Dosage: 500 MG, UNK
  4. NEORAL [Suspect]
     Indication: APLASTIC ANAEMIA
  5. RIFAMPICIN [Suspect]
     Indication: ENDOCARDITIS BACTERIAL
     Dosage: 120 MG, UNK

REACTIONS (1)
  - DRUG INTERACTION [None]
